FAERS Safety Report 23091591 (Version 1)
Quarter: 2023Q4

REPORT INFORMATION
  Report Type: Spontaneous
  Country: DE (occurrence: DE)
  Receive Date: 20231020
  Receipt Date: 20231020
  Transmission Date: 20240110
  Serious: Yes (Other)
  Sender: FDA-Public Use
  Company Number: DE-PAIPHARMA-2023-DE-000176

PATIENT
  Age: 35 Year
  Sex: Female
  Weight: 69 kg

DRUGS (3)
  1. PREDNISOLONE [Suspect]
     Active Substance: PREDNISOLONE
     Indication: Multiple sclerosis
     Dosage: 400 MG DAILY FOR 3 DAYS
     Route: 048
     Dates: start: 20211027
  2. CLADRIBINE [Suspect]
     Active Substance: CLADRIBINE
     Indication: Multiple sclerosis
     Dosage: 60 MG
     Route: 048
     Dates: start: 20211004
  3. ESTROGENS [Concomitant]
     Active Substance: ESTROGENS

REACTIONS (2)
  - Hepatocellular injury [Unknown]
  - Drug interaction [Unknown]
